FAERS Safety Report 19086703 (Version 1)
Quarter: 2021Q2

REPORT INFORMATION
  Report Type: Report from Study
  Country: CN (occurrence: CN)
  Receive Date: 20210402
  Receipt Date: 20210402
  Transmission Date: 20210717
  Serious: Yes (Other)
  Sender: FDA-Public Use
  Company Number: CN-PFIZER INC-2021314917

PATIENT

DRUGS (1)
  1. SILDENAFIL CITRATE. [Suspect]
     Active Substance: SILDENAFIL CITRATE
     Indication: NEWBORN PERSISTENT PULMONARY HYPERTENSION
     Dosage: 2 MG/KG, 4X/DAY
     Route: 048

REACTIONS (1)
  - Neonatal gastrointestinal haemorrhage [Unknown]
